FAERS Safety Report 23776265 (Version 1)
Quarter: 2024Q2

REPORT INFORMATION
  Report Type: Spontaneous
  Country: IT (occurrence: IT)
  Receive Date: 20240424
  Receipt Date: 20240424
  Transmission Date: 20240716
  Serious: Yes (Other)
  Sender: FDA-Public Use
  Company Number: None

PATIENT
  Age: 40 Year
  Sex: Female
  Weight: 67 kg

DRUGS (5)
  1. PACLITAXEL [Suspect]
     Active Substance: PACLITAXEL
     Indication: Breast cancer
     Dosage: 2ND CYCLE/ 8TH DAY WITH PACLITAXEL TEVA* 50ML 6MG/ML (EACH FL CONTAINS 300MG/50ML); ADMINISTERED ...
     Route: 042
  2. METOCLOPRAMIDE [Concomitant]
     Active Substance: METOCLOPRAMIDE
     Indication: Nausea
     Dosage: METOCLOPRAMIDE (PA) ADMINISTERED 10 MG
     Route: 042
     Dates: start: 20230630, end: 20230630
  3. CHLORPHENIRAMINE MALEATE [Concomitant]
     Active Substance: CHLORPHENIRAMINE MALEATE
     Indication: Chemotherapy side effect prophylaxis
     Dosage: CHLORPHENAMINE (PA) ADMINISTERED 10 MG
     Route: 042
     Dates: start: 20230630, end: 20230630
  4. DEXAMETHASONE [Concomitant]
     Active Substance: DEXAMETHASONE
     Indication: Steroid therapy
     Dosage: DEXAMETHASONE (PA) ADMINISTERED 8 MG
     Route: 042
     Dates: start: 20230630, end: 20230630
  5. GRANISETRON [Concomitant]
     Active Substance: GRANISETRON
     Indication: Vomiting
     Dosage: GRANISETRON (PA) ADMINISTERED 3 MG
     Route: 042
     Dates: start: 20230630

REACTIONS (4)
  - Colitis [Not Recovered/Not Resolved]
  - Constipation [Not Recovered/Not Resolved]
  - Abdominal pain [Not Recovered/Not Resolved]
  - Anal inflammation [Not Recovered/Not Resolved]

NARRATIVE: CASE EVENT DATE: 20230626
